FAERS Safety Report 18151546 (Version 2)
Quarter: 2020Q4

REPORT INFORMATION
  Report Type: Spontaneous
  Country: US (occurrence: US)
  Receive Date: 20200814
  Receipt Date: 20201007
  Transmission Date: 20210113
  Serious: Yes (Hospitalization, Other)
  Sender: FDA-Public Use
  Company Number: US-ALEXION-A202011438

PATIENT
  Age: 15 Year
  Sex: Female

DRUGS (7)
  1. SOLIRIS [Suspect]
     Active Substance: ECULIZUMAB
     Indication: SICKLE CELL ANAEMIA WITH CRISIS
     Dosage: 900 MG, SINGLE
     Route: 065
  2. SOLIRIS [Suspect]
     Active Substance: ECULIZUMAB
     Indication: DELAYED HAEMOLYTIC TRANSFUSION REACTION
  3. IMMUNOGLOBULIN I.V [Concomitant]
     Active Substance: HUMAN IMMUNOGLOBULIN G
     Indication: SICKLE CELL ANAEMIA WITH CRISIS
     Dosage: 1 G/KG, UNK
     Route: 042
  4. SOLIRIS [Suspect]
     Active Substance: ECULIZUMAB
     Indication: OFF LABEL USE
     Dosage: 900 MG, SINGLE
     Route: 042
  5. ERYTHROPOIETIN [Concomitant]
     Active Substance: ERYTHROPOIETIN
     Indication: DELAYED HAEMOLYTIC TRANSFUSION REACTION
     Dosage: 210 IU/KG, UNK
     Route: 065
  6. IMMUNOGLOBULIN I.V [Concomitant]
     Active Substance: HUMAN IMMUNOGLOBULIN G
     Indication: DELAYED HAEMOLYTIC TRANSFUSION REACTION
     Dosage: 1 G/KG, UNK
     Route: 042
  7. ERYTHROPOIETIN [Concomitant]
     Active Substance: ERYTHROPOIETIN
     Indication: SICKLE CELL ANAEMIA WITH CRISIS
     Dosage: 210 IU/KG, QD
     Route: 065

REACTIONS (5)
  - Sickle cell anaemia with crisis [Recovered/Resolved]
  - Haemoglobin decreased [Recovered/Resolved]
  - Hypoxia [Recovered/Resolved]
  - Headache [Recovered/Resolved]
  - Off label use [Recovered/Resolved]
